FAERS Safety Report 8238194-2 (Version None)
Quarter: 2012Q1

REPORT INFORMATION
  Report Type: 
  Country: None (occurrence: None)
  Receive Date: 20120327
  Receipt Date: 20120320
  Transmission Date: 20120608
  Serious: Yes (Hospitalization)
  Sender: FDA-Public Use
  Company Number: PHHY2012FR024723

PATIENT
  Sex: Female

DRUGS (2)
  1. VOLTAREN [Suspect]
     Indication: BACK PAIN
     Dosage: 1 DF, QD
     Dates: start: 20120210, end: 20120217
  2. METFORMIN HCL [Suspect]
     Dosage: 1000 MG, TID
     Dates: start: 20100101, end: 20120217

REACTIONS (4)
  - LACTIC ACIDOSIS [None]
  - DRUG LEVEL INCREASED [None]
  - RENAL FAILURE ACUTE [None]
  - DRUG INTERACTION [None]
